FAERS Safety Report 8801256 (Version 5)
Quarter: 2013Q1

REPORT INFORMATION
  Report Type: Report from Study
  Country: CA (occurrence: CA)
  Receive Date: 20120920
  Receipt Date: 20130225
  Transmission Date: 20140127
  Serious: Yes (Other)
  Sender: FDA-Public Use
  Company Number: CA-ROCHE-1130236

PATIENT
  Sex: Male

DRUGS (15)
  1. AVASTIN [Suspect]
     Indication: GLIOBLASTOMA
     Route: 042
     Dates: start: 20081114
  2. AVASTIN [Suspect]
     Route: 042
     Dates: start: 20120402
  3. AVASTIN [Suspect]
     Route: 042
     Dates: start: 20120626
  4. AVASTIN [Suspect]
     Route: 042
     Dates: start: 20121016
  5. AVASTIN [Suspect]
     Route: 042
     Dates: start: 20121116
  6. AVASTIN [Suspect]
     Route: 042
     Dates: start: 20121206
  7. AVASTIN [Suspect]
     Route: 042
     Dates: start: 20121227
  8. AVASTIN [Suspect]
     Route: 042
     Dates: start: 20130116
  9. AVASTIN [Suspect]
     Route: 042
     Dates: start: 20130205
  10. BENADRYL [Concomitant]
     Indication: PREMEDICATION
     Route: 048
     Dates: start: 20121016, end: 20121016
  11. BENADRYL [Concomitant]
     Route: 048
  12. TYLENOL [Concomitant]
     Indication: PREMEDICATION
     Route: 048
     Dates: start: 20121016, end: 20121016
  13. TYLENOL [Concomitant]
     Route: 048
  14. SOLU-MEDROL [Concomitant]
     Indication: PREMEDICATION
     Route: 042
     Dates: start: 20121016, end: 20121016
  15. SOLU-MEDROL [Concomitant]
     Route: 042

REACTIONS (4)
  - Renal failure [Not Recovered/Not Resolved]
  - Blood pressure increased [Not Recovered/Not Resolved]
  - Platelet count decreased [Recovered/Resolved]
  - Protein urine [Unknown]
